FAERS Safety Report 4553547-1 (Version None)
Quarter: 2005Q1

REPORT INFORMATION
  Report Type: 
  Country: None (occurrence: None)
  Receive Date: 20050112
  Receipt Date: 20050104
  Transmission Date: 20050727
  Serious: Yes (Hospitalization)
  Sender: FDA-Public Use
  Company Number: 05UK  0006

PATIENT
  Sex: Male

DRUGS (7)
  1. AGGRASTAT [Suspect]
     Indication: ACUTE CORONARY SYNDROME
     Dosage: 36 ML/H AND 9 ML/H
     Dates: start: 20041124, end: 20041125
  2. ENOXAPARIN SODIUM (HEPARIN-FRACTION, SODIUM SALT) (AMP SC.) [Suspect]
     Dosage: 70 MG BID
     Dates: start: 20041124, end: 20041125
  3. CLOPIDOGREL BISULFATE (CLOPIDOGREL SULFATE) (TABLETS) [Suspect]
     Indication: MYOCARDIAL INFARCTION
     Dosage: 75 MG
     Dates: start: 20041124
  4. ASPIRIN [Concomitant]
  5. ATENOLOL [Concomitant]
  6. RAMIPRIL [Concomitant]
  7. SIMVASTATIN [Concomitant]

REACTIONS (2)
  - PETECHIAE [None]
  - THROMBOCYTOPENIA [None]
